FAERS Safety Report 4768111-9 (Version None)
Quarter: 2005Q3

REPORT INFORMATION
  Report Type: 
  Country: None (occurrence: None)
  Receive Date: 20050912
  Receipt Date: 20050912
  Transmission Date: 20060218
  Serious: Yes (Hospitalization)
  Sender: FDA-Public Use
  Company Number: None

PATIENT
  Age: 51 Year
  Sex: Male

DRUGS (7)
  1. VANCOMYCIN [Suspect]
     Indication: ARTHRITIS INFECTIVE
     Dosage: 1GM EVERY 12 HOURS IV
     Route: 042
     Dates: start: 20050620, end: 20050716
  2. VANCOMYCIN [Suspect]
     Indication: STAPHYLOCOCCAL INFECTION
     Dosage: 1GM EVERY 12 HOURS IV
     Route: 042
     Dates: start: 20050620, end: 20050716
  3. RANITIDINE [Concomitant]
  4. DIPHENHYDRAMINE HCL [Concomitant]
  5. DOCUSATE SODIUM [Concomitant]
  6. PERCOCET [Concomitant]
  7. LINEZOLID [Concomitant]

REACTIONS (5)
  - HYPOTENSION [None]
  - RASH ERYTHEMATOUS [None]
  - RASH MACULO-PAPULAR [None]
  - RASH PRURITIC [None]
  - TACHYCARDIA [None]
